FAERS Safety Report 13420760 (Version 1)
Quarter: 2017Q2

REPORT INFORMATION
  Report Type: Spontaneous
  Country: RU (occurrence: RU)
  Receive Date: 20170409
  Receipt Date: 20170409
  Transmission Date: 20170830
  Serious: Yes (Hospitalization)
  Sender: FDA-Public Use
  Company Number: RU-ASTRAZENECA-2017SE35605

PATIENT
  Age: 79 Year
  Sex: Female
  Weight: 78 kg

DRUGS (7)
  1. ATACAND [Suspect]
     Active Substance: CANDESARTAN CILEXETIL
     Indication: HYPERTENSION
     Route: 048
  2. ATACAND [Suspect]
     Active Substance: CANDESARTAN CILEXETIL
     Indication: HYPERTENSION
     Dosage: NEW PACK ATACAND
     Route: 048
     Dates: start: 20170308
  3. ATACAND [Suspect]
     Active Substance: CANDESARTAN CILEXETIL
     Indication: HYPERTENSION
     Dosage: NEW PACK ATACAND
     Route: 048
     Dates: start: 201611
  4. ISOPTIN [Concomitant]
     Active Substance: VERAPAMIL HYDROCHLORIDE
  5. PHYSIOTENS [Concomitant]
     Active Substance: MOXONIDINE
  6. VENTOLIN [Concomitant]
     Active Substance: ALBUTEROL SULFATE
  7. CORAXAN [Concomitant]
     Active Substance: IVABRADINE HYDROCHLORIDE

REACTIONS (4)
  - Product counterfeit [Unknown]
  - Drug ineffective [Recovered/Resolved]
  - Urinary tract disorder [Recovered/Resolved]
  - Dyspnoea [Recovered/Resolved]

NARRATIVE: CASE EVENT DATE: 201611
